FAERS Safety Report 8589683-2 (Version None)
Quarter: 2012Q3

REPORT INFORMATION
  Report Type: 
  Country: None (occurrence: None)
  Receive Date: 20120813
  Receipt Date: 20120801
  Transmission Date: 20120928
  Serious: Yes (Hospitalization, Disabling, Other)
  Sender: FDA-Public Use
  Company Number: US-009507513-1206USA00877

PATIENT

DRUGS (7)
  1. FOSAMAX [Suspect]
     Dosage: 70 MG, UNK
     Route: 048
     Dates: start: 20060222, end: 20100618
  2. ALENDRONATE SODIUM [Suspect]
     Dosage: 70 MG/KG, UNK
     Dates: start: 20091121
  3. FOSAMAX [Suspect]
     Indication: OSTEOPOROSIS
     Dosage: 70 MG, UNK
     Route: 048
     Dates: start: 20010108, end: 20041201
  4. BENICAR [Concomitant]
  5. LEVOTHROID [Suspect]
     Indication: HYPOTHYROIDISM
     Dosage: UNK
     Dates: start: 19500101
  6. ZOCOR [Concomitant]
     Dosage: 40 MG, UNK
     Dates: start: 20060916
  7. SINEMET [Concomitant]
     Dosage: 25 MG, UNK
     Dates: start: 20061010

REACTIONS (34)
  - ACUTE MYOCARDIAL INFARCTION [None]
  - HALLUCINATION, VISUAL [None]
  - HYPERTENSION [None]
  - SUPRAVENTRICULAR EXTRASYSTOLES [None]
  - CORONARY ARTERY DISEASE [None]
  - BOWEL MOVEMENT IRREGULARITY [None]
  - HYPERCHOLESTEROLAEMIA [None]
  - MENISCUS LESION [None]
  - VENTRICULAR TACHYCARDIA [None]
  - CARDIAC FAILURE CONGESTIVE [None]
  - RIB FRACTURE [None]
  - POST HERPETIC NEURALGIA [None]
  - NAUSEA [None]
  - FEMUR FRACTURE [None]
  - ASPARTATE AMINOTRANSFERASE INCREASED [None]
  - FALL [None]
  - RESTLESS LEGS SYNDROME [None]
  - LEUKOCYTOSIS [None]
  - CHONDROPATHY [None]
  - DEPRESSION [None]
  - HYPONATRAEMIA [None]
  - STRESS FRACTURE [None]
  - ANAEMIA [None]
  - FEELING ABNORMAL [None]
  - DECREASED APPETITE [None]
  - URINARY TRACT INFECTION [None]
  - DRUG INEFFECTIVE [None]
  - GASTRIC ULCER [None]
  - ADVERSE EVENT [None]
  - VITAMIN D DEFICIENCY [None]
  - ANXIETY [None]
  - POLYMYALGIA RHEUMATICA [None]
  - PALPITATIONS [None]
  - PAIN IN EXTREMITY [None]
